FAERS Safety Report 26134087 (Version 1)
Quarter: 2025Q4

REPORT INFORMATION
  Report Type: Spontaneous
  Country: EU (occurrence: EU)
  Receive Date: 20251209
  Receipt Date: 20251209
  Transmission Date: 20260117
  Serious: Yes (Life-Threatening, Other)
  Sender: RANBAXY
  Company Number: EU-SUN PHARMACEUTICAL INDUSTRIES LTD-2025R1-509573

PATIENT
  Age: 7 Decade
  Sex: Female

DRUGS (13)
  1. DASATINIB [Suspect]
     Active Substance: DASATINIB
     Indication: B-cell type acute leukaemia
     Dosage: 100 MILLIGRAM, DAILY
     Route: 065
     Dates: start: 202307
  2. DASATINIB [Suspect]
     Active Substance: DASATINIB
     Dosage: 140 MILLIGRAM, DAILY
     Route: 065
     Dates: start: 202307
  3. IMATINIB [Suspect]
     Active Substance: IMATINIB
     Indication: B precursor type acute leukaemia
     Dosage: UNK (200-400 MG )
     Route: 065
     Dates: start: 202107
  4. PONATINIB [Suspect]
     Active Substance: PONATINIB
     Indication: B precursor type acute leukaemia
     Dosage: 45 MILLIGRAM, DAILY
     Route: 065
     Dates: start: 202401
  5. CYTARABINE [Concomitant]
     Active Substance: CYTARABINE
     Indication: B precursor type acute leukaemia
     Dosage: UNK
     Route: 065
  6. DEXAMETHASONE [Concomitant]
     Active Substance: DEXAMETHASONE
     Indication: B-cell type acute leukaemia
     Dosage: 40 MILLIGRAM, QD
     Route: 065
     Dates: start: 202307
  7. INOTUZUMAB OZOGAMICIN [Concomitant]
     Active Substance: INOTUZUMAB OZOGAMICIN
     Indication: B precursor type acute leukaemia
     Dosage: UNK (0.8 MG/M2 ON DAY 1; RECEIVED 6 CYCLES )
     Route: 065
  8. INOTUZUMAB OZOGAMICIN [Concomitant]
     Active Substance: INOTUZUMAB OZOGAMICIN
     Dosage: UNK (0.5 MG/M2 ON DAY 8; RECEIVED 6 CYCLES)
     Route: 065
  9. INOTUZUMAB OZOGAMICIN [Concomitant]
     Active Substance: INOTUZUMAB OZOGAMICIN
     Dosage: UNK (0.5 MG/M2 ON DAY 15; RECEIVED 6 CYCLES)
     Route: 065
  10. METHOTREXATE [Concomitant]
     Active Substance: METHOTREXATE
     Indication: B precursor type acute leukaemia
     Dosage: UNK
     Route: 065
  11. PEG/L-ASPARAGINASE [Concomitant]
     Active Substance: PEGASPARGASE
     Indication: B precursor type acute leukaemia
     Dosage: UNK
     Route: 065
  12. RITUXIMAB [Concomitant]
     Active Substance: RITUXIMAB
     Indication: B precursor type acute leukaemia
     Dosage: UNK
     Route: 065
  13. VINCRISTINE [Concomitant]
     Active Substance: VINCRISTINE
     Indication: B precursor type acute leukaemia
     Dosage: UNK
     Route: 065

REACTIONS (6)
  - Drug resistance [Unknown]
  - Gastrointestinal toxicity [Unknown]
  - Haematotoxicity [Unknown]
  - Neutropenia [Unknown]
  - Disease recurrence [Unknown]
  - Gene mutation [Unknown]

NARRATIVE: CASE EVENT DATE: 20230101
